FAERS Safety Report 8059331-9 (Version None)
Quarter: 2012Q1

REPORT INFORMATION
  Report Type: 
  Country: None (occurrence: None)
  Receive Date: 20120112
  Receipt Date: 20120104
  Transmission Date: 20120608
  Serious: Yes (Life-Threatening, Hospitalization, Other)
  Sender: FDA-Public Use
  Company Number: 2011MA018038

PATIENT
  Age: 54 Year
  Sex: Male

DRUGS (8)
  1. RAMIPRIL [Suspect]
     Indication: HYPERTENSION
     Dosage: PO
     Route: 048
  2. BISOPROLOL [Concomitant]
  3. ATORVASTATIN [Concomitant]
  4. METFORMIN HYDROCHLORIDE [Suspect]
     Indication: DIABETES MELLITUS MANAGEMENT
     Dosage: PO
     Route: 048
  5. UNSPECIFIED THERAPEUTIC PRODUCTS (NO PREF. NAME) [Suspect]
     Indication: CORONARY ARTERY DISEASE
     Dosage: PO
     Route: 048
     Dates: start: 20111117, end: 20111209
  6. ASPIRIN [Concomitant]
  7. NITROGLYCERIN [Concomitant]
  8. FUROSEMIDE [Concomitant]

REACTIONS (8)
  - RENAL FAILURE ACUTE [None]
  - SEPSIS [None]
  - FALL [None]
  - HYPOTHERMIA [None]
  - ACTIVATED PARTIAL THROMBOPLASTIN TIME PROLONGED [None]
  - BLOOD BILIRUBIN INCREASED [None]
  - HYPOGLYCAEMIA [None]
  - LACTIC ACIDOSIS [None]
